FAERS Safety Report 16053094 (Version 1)
Quarter: 2019Q1

REPORT INFORMATION
  Report Type: Spontaneous
  Country: US (occurrence: US)
  Receive Date: 20190308
  Receipt Date: 20190308
  Transmission Date: 20190418
  Serious: No
  Sender: FDA-Public Use
  Company Number: US-PERRIGO-18US006187

PATIENT
  Sex: Male

DRUGS (1)
  1. TESTOSTERONE. [Suspect]
     Active Substance: TESTOSTERONE
     Indication: PRODUCT USED FOR UNKNOWN INDICATION
     Dosage: UNKNOWN, UNKNOWN
     Route: 061
     Dates: start: 201805

REACTIONS (4)
  - Nausea [Unknown]
  - Myalgia [Unknown]
  - Insomnia [Unknown]
  - Muscle twitching [Unknown]

NARRATIVE: CASE EVENT DATE: 201805
